FAERS Safety Report 12297927 (Version 2)
Quarter: 2016Q2

REPORT INFORMATION
  Report Type: Spontaneous
  Country: US (occurrence: US)
  Receive Date: 20160422
  Receipt Date: 20160531
  Transmission Date: 20160815
  Serious: Yes (Other)
  Sender: FDA-Public Use
  Company Number: US-PFIZER INC-2016202468

PATIENT
  Age: 93 Year
  Sex: Male

DRUGS (7)
  1. SUTENT [Suspect]
     Active Substance: SUNITINIB MALATE
     Dosage: 37.5 MG, CYCLIC, (1 PER DAY 28 DAYS- THEN OFF 2 WEEKS)
     Dates: start: 20150120
  2. SUTENT [Suspect]
     Active Substance: SUNITINIB MALATE
     Dosage: 25 MG, 28 DAYS
     Dates: start: 20141217
  3. SUTENT [Suspect]
     Active Substance: SUNITINIB MALATE
     Indication: ABDOMINAL NEOPLASM
     Dosage: 25 MG, UNK
     Dates: start: 20141203
  4. SUTENT [Suspect]
     Active Substance: SUNITINIB MALATE
     Dosage: 25 MG, CYCLIC (1 PER DAY 28 DAYS- THEN OFF 2 WEEKS)
  5. SUTENT [Suspect]
     Active Substance: SUNITINIB MALATE
     Dosage: 25 MG, UNK
     Dates: start: 20141212, end: 20150212
  6. SUTENT [Suspect]
     Active Substance: SUNITINIB MALATE
     Dosage: 25 MG, UNK
     Dates: start: 20151104
  7. SUTENT [Suspect]
     Active Substance: SUNITINIB MALATE
     Dosage: UNK
     Dates: start: 20141214

REACTIONS (5)
  - Second primary malignancy [Recovered/Resolved]
  - Ear neoplasm [Recovered/Resolved]
  - White blood cell count decreased [Unknown]
  - Dry eye [Unknown]
  - Product use issue [Unknown]

NARRATIVE: CASE EVENT DATE: 20150225
